FAERS Safety Report 6034523-9 (Version None)
Quarter: 2009Q1

REPORT INFORMATION
  Report Type: 
  Country: None (occurrence: None)
  Receive Date: 20090112
  Receipt Date: 20081231
  Transmission Date: 20090719
  Serious: Yes (Other)
  Sender: FDA-Public Use
  Company Number: US-PFIZER INC-2008082547

PATIENT
  Sex: Female
  Weight: 63.5 kg

DRUGS (8)
  1. LYRICA [Suspect]
     Indication: NEURALGIA
     Dosage: UNK
     Dates: start: 20080401
  2. LYRICA [Suspect]
     Indication: FIBROMYALGIA
  3. CELEXA [Concomitant]
  4. DETROL LA [Concomitant]
  5. COREG [Concomitant]
  6. ADVAIR DISKUS 250/50 [Concomitant]
  7. ALBUTEROL [Concomitant]
  8. ZOCOR [Concomitant]

REACTIONS (4)
  - ACCIDENTAL OVERDOSE [None]
  - ACTIVITIES OF DAILY LIVING IMPAIRED [None]
  - SEDATION [None]
  - SOMNOLENCE [None]
